FAERS Safety Report 4284836-6 (Version None)
Quarter: 2004Q1

REPORT INFORMATION
  Report Type: 
  Country: None (occurrence: None)
  Receive Date: 20040204
  Receipt Date: 20040126
  Transmission Date: 20041129
  Serious: Yes (Hospitalization)
  Sender: FDA-Public Use
  Company Number: US-BRISTOL-MYERS SQUIBB COMPANY-12486312

PATIENT
  Age: 61 Year
  Sex: Female

DRUGS (12)
  1. CARBOPLATIN [Suspect]
     Indication: OVARIAN CANCER
     Route: 042
     Dates: start: 20020418, end: 20020418
  2. PACLITAXEL [Suspect]
     Indication: OVARIAN CANCER
     Route: 042
     Dates: start: 20020418, end: 20020418
  3. INTERFERON GAMMA [Suspect]
     Indication: OVARIAN CANCER
     Dosage: ^100 UG^
     Route: 058
     Dates: start: 20020418, end: 20020422
  4. VENLAFAXINE HCL [Concomitant]
     Dates: start: 20001201
  5. PREMARIN [Concomitant]
     Dates: start: 19870101
  6. LANSOPRAZOLE [Concomitant]
     Dates: start: 20011101
  7. ACETAMINOPHEN [Concomitant]
  8. DEXAMETHASONE [Concomitant]
     Dates: start: 20020417, end: 20020418
  9. PROCHLORPERAZINE [Concomitant]
     Dates: start: 20020418
  10. RISPERDAL [Concomitant]
     Dates: start: 20020419
  11. IMODIUM [Concomitant]
     Dates: start: 20020419
  12. HYDROCODONE + ACETAMINOPHEN [Concomitant]
     Dates: start: 20020419

REACTIONS (2)
  - DEEP VEIN THROMBOSIS [None]
  - PYREXIA [None]
